FAERS Safety Report 8379017-0 (Version None)
Quarter: 2012Q2

REPORT INFORMATION
  Report Type: 
  Country: None (occurrence: None)
  Receive Date: 20120522
  Receipt Date: 20120522
  Transmission Date: 20120825
  Serious: Yes (Other)
  Sender: FDA-Public Use
  Company Number: None

PATIENT
  Age: 43 Year
  Sex: Female
  Weight: 104.3273 kg

DRUGS (1)
  1. ABILIFY [Suspect]
     Indication: DEPRESSION
     Dosage: 5 MG ONE AT NIGHT ORAL ABOUT A YEAR
     Route: 048

REACTIONS (3)
  - TARDIVE DYSKINESIA [None]
  - HEAD TITUBATION [None]
  - EXCESSIVE EYE BLINKING [None]
